FAERS Safety Report 11178068 (Version 2)
Quarter: 2015Q3

REPORT INFORMATION
  Report Type: Spontaneous
  Country: CH (occurrence: CH)
  Receive Date: 20150610
  Receipt Date: 20150904
  Transmission Date: 20151125
  Serious: Yes (Hospitalization)
  Sender: FDA-Public Use
  Company Number: CH-PFIZER INC-2015191656

PATIENT
  Age: 29 Month
  Sex: Male
  Weight: 13 kg

DRUGS (1)
  1. SIROLIMUS. [Suspect]
     Active Substance: SIROLIMUS
     Dosage: 3 MG, UNK (0.23 MG/KG)
     Route: 048

REACTIONS (5)
  - Accidental exposure to product by child [Unknown]
  - Pyrexia [Unknown]
  - Gastroenteritis [Unknown]
  - Accidental overdose [Unknown]
  - Blood alkaline phosphatase increased [Unknown]
